FAERS Safety Report 17358725 (Version 1)
Quarter: 2020Q1

REPORT INFORMATION
  Report Type: Report from Study
  Country: DE (occurrence: DE)
  Receive Date: 20200201
  Receipt Date: 20200201
  Transmission Date: 20200409
  Serious: Yes (Other)
  Sender: FDA-Public Use
  Company Number: PHHY2019DE223036

PATIENT
  Age: 53 Year
  Sex: Male

DRUGS (39)
  1. CYCLOPHOSPHAMIDE. [Suspect]
     Active Substance: CYCLOPHOSPHAMIDE
     Dosage: 1370 MG, UNK
     Route: 041
     Dates: start: 20190425, end: 20190425
  2. CYCLOPHOSPHAMIDE. [Suspect]
     Active Substance: CYCLOPHOSPHAMIDE
     Dosage: 1400 MG, UNK
     Route: 041
     Dates: start: 20190514, end: 20190514
  3. DOXORUBICIN [Suspect]
     Active Substance: DOXORUBICIN
     Dosage: 90 MG, UNK
     Route: 041
     Dates: start: 20190402, end: 20190402
  4. RITUXIMAB. [Suspect]
     Active Substance: RITUXIMAB
     Dosage: 680 MG, UNK
     Route: 041
     Dates: start: 20190424, end: 20190424
  5. CYCLOPHOSPHAMIDE. [Suspect]
     Active Substance: CYCLOPHOSPHAMIDE
     Dosage: 1410 MG, UNK
     Route: 041
     Dates: start: 20190604, end: 20190604
  6. DOXORUBICIN [Suspect]
     Active Substance: DOXORUBICIN
     Dosage: 95 MG, UNK
     Route: 041
     Dates: start: 20190604, end: 20190604
  7. DOXORUBICIN [Suspect]
     Active Substance: DOXORUBICIN
     Dosage: 95 MG, UNK
     Route: 041
     Dates: start: 20190618, end: 20190618
  8. PREDNISONE. [Suspect]
     Active Substance: PREDNISONE
     Dosage: 500 MG, UNK
     Route: 048
     Dates: start: 20190402, end: 20190402
  9. PREDNISONE. [Suspect]
     Active Substance: PREDNISONE
     Dosage: 500 MG, UNK
     Route: 048
     Dates: start: 20190425, end: 20190425
  10. VINCRISTINE [Suspect]
     Active Substance: VINCRISTINE
     Indication: DIFFUSE LARGE B-CELL LYMPHOMA
     Dosage: 2 MG, UNK
     Route: 041
     Dates: start: 20190319, end: 20190319
  11. VINCRISTINE [Suspect]
     Active Substance: VINCRISTINE
     Dosage: 2 MG, UNK
     Route: 041
     Dates: start: 20190604, end: 20190604
  12. PREDNISOLONE. [Concomitant]
     Active Substance: PREDNISOLONE
     Indication: PROPHYLAXIS
     Dosage: UNK
     Route: 042
     Dates: start: 20190318
  13. RITUXIMAB. [Suspect]
     Active Substance: RITUXIMAB
     Dosage: 700 MG, UNK
     Route: 041
     Dates: start: 20190603, end: 20190603
  14. DOXORUBICIN [Suspect]
     Active Substance: DOXORUBICIN
     Dosage: 90 MG, UNK
     Route: 041
     Dates: start: 20190425, end: 20190425
  15. PREDNISONE. [Suspect]
     Active Substance: PREDNISONE
     Dosage: 500 MG, UNK
     Route: 048
     Dates: start: 20190514, end: 20190514
  16. VINCRISTINE [Suspect]
     Active Substance: VINCRISTINE
     Dosage: 2 MG, UNK
     Route: 041
     Dates: start: 20190402, end: 20190402
  17. VINCRISTINE [Suspect]
     Active Substance: VINCRISTINE
     Dosage: 2 MG, UNK
     Route: 041
     Dates: start: 20190425, end: 20190425
  18. VINCRISTINE [Suspect]
     Active Substance: VINCRISTINE
     Dosage: 2 MG, UNK
     Route: 041
     Dates: start: 20190618, end: 20190618
  19. ALLOPURINOL. [Concomitant]
     Active Substance: ALLOPURINOL
     Indication: PROPHYLAXIS
     Dosage: UNK
     Route: 048
     Dates: start: 20190318, end: 20190318
  20. RITUXIMAB. [Suspect]
     Active Substance: RITUXIMAB
     Dosage: 700 MG, UNK
     Route: 041
     Dates: start: 20190513, end: 20190513
  21. DOXORUBICIN [Suspect]
     Active Substance: DOXORUBICIN
     Indication: DIFFUSE LARGE B-CELL LYMPHOMA
     Dosage: 90 MG, UNK
     Route: 041
     Dates: start: 20190319, end: 20190319
  22. PREDNISONE. [Suspect]
     Active Substance: PREDNISONE
     Indication: DIFFUSE LARGE B-CELL LYMPHOMA
     Dosage: 500 MG, UNK
     Route: 048
     Dates: start: 20190319, end: 20190319
  23. MESNA. [Concomitant]
     Active Substance: MESNA
     Indication: PROPHYLAXIS
     Dosage: UNK (OR ORAL)
     Route: 042
     Dates: start: 20190319
  24. PREDNISONE. [Suspect]
     Active Substance: PREDNISONE
     Dosage: 500 MG, UNK
     Route: 048
     Dates: start: 20190618, end: 20190622
  25. CIPROFLOXACIN. [Concomitant]
     Active Substance: CIPROFLOXACIN
     Indication: PROPHYLAXIS
     Dosage: UNK
     Route: 048
     Dates: start: 20190324
  26. FENISTIL [Concomitant]
     Active Substance: DIMETHINDENE
     Indication: PROPHYLAXIS
     Dosage: UNK
     Route: 042
     Dates: start: 20190318
  27. FLUCONAZOLE. [Concomitant]
     Active Substance: FLUCONAZOLE
     Indication: PROPHYLAXIS
     Dosage: UNK
     Route: 048
     Dates: start: 20190318
  28. RITUXIMAB. [Suspect]
     Active Substance: RITUXIMAB
     Indication: DIFFUSE LARGE B-CELL LYMPHOMA
     Dosage: 680 MG, UNK
     Route: 041
     Dates: start: 20190318, end: 20190318
  29. CYCLOPHOSPHAMIDE. [Suspect]
     Active Substance: CYCLOPHOSPHAMIDE
     Indication: DIFFUSE LARGE B-CELL LYMPHOMA
     Dosage: 1360 MG, UNK
     Route: 041
     Dates: start: 20190319, end: 20190319
  30. CYCLOPHOSPHAMIDE. [Suspect]
     Active Substance: CYCLOPHOSPHAMIDE
     Dosage: 1340 MG, UNK
     Route: 041
     Dates: start: 20190402, end: 20190402
  31. NEULASTA [Concomitant]
     Active Substance: PEGFILGRASTIM
     Indication: PROPHYLAXIS
     Dosage: UNK
     Route: 058
     Dates: start: 20190319
  32. PARACETAMOL [Concomitant]
     Active Substance: ACETAMINOPHEN
     Indication: PROPHYLAXIS
     Dosage: UNK
     Route: 042
     Dates: start: 20190318
  33. RITUXIMAB. [Suspect]
     Active Substance: RITUXIMAB
     Dosage: 710 MG, UNK
     Route: 041
     Dates: start: 20190617
  34. PREDNISONE. [Suspect]
     Active Substance: PREDNISONE
     Dosage: 500 MG, UNK
     Route: 048
     Dates: start: 20190604, end: 20190604
  35. VINCRISTINE [Suspect]
     Active Substance: VINCRISTINE
     Dosage: 2 MG, UNK
     Route: 041
     Dates: start: 20190514, end: 20190514
  36. GRANISETRON [Concomitant]
     Active Substance: GRANISETRON
     Indication: PROPHYLAXIS
     Dosage: UNK
     Route: 042
     Dates: start: 20190319
  37. RITUXIMAB. [Suspect]
     Active Substance: RITUXIMAB
     Dosage: 670 MG, UNK
     Route: 041
     Dates: start: 20190401, end: 20190401
  38. CYCLOPHOSPHAMIDE. [Suspect]
     Active Substance: CYCLOPHOSPHAMIDE
     Dosage: 1430 MG, UNK
     Route: 041
     Dates: start: 20190618, end: 20190618
  39. DOXORUBICIN [Suspect]
     Active Substance: DOXORUBICIN
     Dosage: 95 MG, UNK
     Route: 041
     Dates: start: 20190514, end: 20190514

REACTIONS (2)
  - Neutropenia [Recovered/Resolved]
  - Toothache [Recovered/Resolved]

NARRATIVE: CASE EVENT DATE: 20190513
